FAERS Safety Report 8350333-1 (Version None)
Quarter: 2012Q2

REPORT INFORMATION
  Report Type: 
  Country: None (occurrence: None)
  Receive Date: 20120510
  Receipt Date: 20120426
  Transmission Date: 20120825
  Serious: Yes (Hospitalization)
  Sender: FDA-Public Use
  Company Number: GB-ROCHE-1066439

PATIENT
  Sex: Female
  Weight: 58 kg

DRUGS (5)
  1. COPEGUS [Suspect]
     Indication: HEPATITIS C
     Dates: start: 20110926
  2. BLINDED ALISPORIVIR [Suspect]
     Indication: HEPATITIS C
     Dates: start: 20111116
  3. CITALOPRAM [Suspect]
     Indication: DEPRESSED MOOD
     Route: 048
     Dates: start: 20111114
  4. CODEINE PHOSPHATE AND PARACETAMOL [Suspect]
     Indication: PRODUCT USED FOR UNKNOWN INDICATION
     Dates: start: 20120104
  5. PEGASYS [Suspect]
     Indication: HEPATITIS C
     Dates: start: 20110926

REACTIONS (6)
  - NAUSEA [None]
  - DIZZINESS [None]
  - ABDOMINAL PAIN LOWER [None]
  - VOMITING [None]
  - TOOTH ABSCESS [None]
  - CONCOMITANT DISEASE PROGRESSION [None]
